FAERS Safety Report 5703465-8 (Version None)
Quarter: 2008Q2

REPORT INFORMATION
  Report Type: 
  Country: None (occurrence: None)
  Receive Date: 20080411
  Receipt Date: 20080328
  Transmission Date: 20081010
  Serious: Yes (Hospitalization)
  Sender: FDA-Public Use
  Company Number: US-AMGEN-QUU271682

PATIENT
  Sex: Female

DRUGS (1)
  1. ENBREL [Suspect]
     Indication: RHEUMATOID ARTHRITIS
     Route: 058
     Dates: start: 20001127

REACTIONS (4)
  - HIP ARTHROPLASTY [None]
  - RHEUMATOID ARTHRITIS [None]
  - VASCULAR GRAFT [None]
  - WOUND INFECTION [None]
